FAERS Safety Report 24313056 (Version 1)
Quarter: 2024Q3

REPORT INFORMATION
  Report Type: Spontaneous
  Country: US (occurrence: US)
  Receive Date: 20240912
  Receipt Date: 20240912
  Transmission Date: 20241016
  Serious: Yes (Other)
  Sender: BRISTOL MYERS SQUIBB
  Company Number: US-BRISTOL-MYERS SQUIBB COMPANY-2024-144676

PATIENT
  Age: 70 Year
  Sex: Female

DRUGS (1)
  1. REVLIMID [Suspect]
     Active Substance: LENALIDOMIDE
     Indication: Plasma cell myeloma
     Dosage: FREQUENCY: QD FOR 21 DAYS THEN 7 DAYS OFF
     Route: 048

REACTIONS (2)
  - Pneumonia [Unknown]
  - Tongue eruption [Recovering/Resolving]

NARRATIVE: CASE EVENT DATE: 20240801
